FAERS Safety Report 9555162 (Version 1)
Quarter: 2013Q3

REPORT INFORMATION
  Report Type: Spontaneous
  Country: US (occurrence: None)
  Receive Date: 20130913
  Receipt Date: 20130913
  Transmission Date: 20140515
  Serious: Yes (Other)
  Sender: FDA-Public Use
  Company Number: 1393575

PATIENT
  Sex: 0

DRUGS (1)
  1. NORADRENALINE (NOREPINEPHRINE) 1 MG/ML (NORADRENALINE TARTRATE) [Suspect]
     Indication: PRODUCT USED FOR UNKNOWN INDICATION

REACTIONS (1)
  - Blood pressure decreased [None]
